FAERS Safety Report 21987114 (Version 1)
Quarter: 2023Q1

REPORT INFORMATION
  Report Type: Spontaneous
  Country: CA (occurrence: CA)
  Receive Date: 20230213
  Receipt Date: 20230213
  Transmission Date: 20230417
  Serious: Yes (Other)
  Sender: FDA-Public Use
  Company Number: CA-JNJFOC-20230226164

PATIENT
  Age: 54 Year
  Sex: Female
  Weight: 92 kg

DRUGS (8)
  1. REMICADE [Suspect]
     Active Substance: INFLIXIMAB
     Indication: Colitis ulcerative
     Route: 041
  2. INFLIXIMAB [Suspect]
     Active Substance: INFLIXIMAB
     Indication: Colitis ulcerative
     Route: 042
  3. INFLIXIMAB [Suspect]
     Active Substance: INFLIXIMAB
     Route: 042
  4. INFLIXIMAB [Suspect]
     Active Substance: INFLIXIMAB
     Route: 042
  5. LIPITOR [Concomitant]
     Active Substance: ATORVASTATIN CALCIUM
  6. PENTASA [Concomitant]
     Active Substance: MESALAMINE
  7. PREDNISONE [Concomitant]
     Active Substance: PREDNISONE
  8. RAMIPRIL [Concomitant]
     Active Substance: RAMIPRIL

REACTIONS (10)
  - Asthenia [Unknown]
  - Poor venous access [Unknown]
  - Skin turgor decreased [Unknown]
  - Weight increased [Unknown]
  - Dehydration [Unknown]
  - Colitis ulcerative [Unknown]
  - Dizziness [Unknown]
  - Hypotension [Unknown]
  - Off label use [Unknown]
  - Inappropriate schedule of product administration [Unknown]
